FAERS Safety Report 7583564-9 (Version None)
Quarter: 2011Q2

REPORT INFORMATION
  Report Type: 
  Country: None (occurrence: None)
  Receive Date: 20110527
  Receipt Date: 20110127
  Transmission Date: 20111010
  Serious: Yes (Other)
  Sender: FDA-Public Use
  Company Number: US201002003450

PATIENT
  Age: 52 Year
  Sex: Male

DRUGS (4)
  1. VIAGRA [Concomitant]
  2. BYETTA [Suspect]
     Dosage: 2/D, 10 UG, 2/D
     Dates: start: 20050101
  3. BYETTA [Suspect]
     Dosage: 2/D, 10 UG, 2/D
     Dates: start: 20090101
  4. EXENATIDE PEN (EXENATIDE PEN) [Concomitant]

REACTIONS (1)
  - PANCREATITIS [None]
